FAERS Safety Report 9259867 (Version 3)
Quarter: 2013Q4

REPORT INFORMATION
  Report Type: Spontaneous
  Country: US (occurrence: US)
  Receive Date: 20130429
  Receipt Date: 20131004
  Transmission Date: 20140711
  Serious: Yes (Other)
  Sender: FDA-Public Use
  Company Number: US-ASTRAZENECA-2013SE27491

PATIENT
  Age: 654 Month
  Sex: Male
  Weight: 87.1 kg

DRUGS (13)
  1. NEXIUM [Suspect]
     Indication: GASTRIC HAEMORRHAGE
     Dosage: ONCE DAILY
     Route: 048
  2. NEXIUM [Suspect]
     Indication: GASTROOESOPHAGEAL REFLUX DISEASE
     Dosage: ONCE DAILY
     Route: 048
  3. NEXIUM [Suspect]
     Indication: GASTRIC HAEMORRHAGE
     Route: 048
     Dates: start: 20100909
  4. NEXIUM [Suspect]
     Indication: GASTROOESOPHAGEAL REFLUX DISEASE
     Route: 048
     Dates: start: 20100909
  5. PEPCID [Concomitant]
     Indication: DYSPEPSIA
  6. TUMS [Concomitant]
     Indication: DYSPEPSIA
  7. ROLAIDS [Concomitant]
     Dosage: OCASSIONALLY
  8. PEPTO-BISMOL [Concomitant]
  9. ALKA-SELTZER [Concomitant]
  10. MILK OF MAGNESIA [Concomitant]
  11. METFORMIN [Concomitant]
     Indication: DIABETES MELLITUS
     Dosage: TWICE A DAY
  12. GLIPIZIDE [Concomitant]
     Indication: DIABETES MELLITUS
     Dosage: ONCE A DAY
  13. RAMIPRIL [Concomitant]
     Indication: HYPERTENSION
     Dosage: ONCE A DAY

REACTIONS (8)
  - Hip fracture [Unknown]
  - Stress fracture [Unknown]
  - Osteoporosis [Unknown]
  - Bone disorder [Unknown]
  - Multiple fractures [Unknown]
  - Arthritis [Unknown]
  - Road traffic accident [Unknown]
  - Arthralgia [Unknown]
